FAERS Safety Report 7769905-8 (Version None)
Quarter: 2011Q3

REPORT INFORMATION
  Report Type: 
  Country: None (occurrence: None)
  Receive Date: 20110922
  Receipt Date: 20110920
  Transmission Date: 20111222
  Serious: Yes (Hospitalization)
  Sender: FDA-Public Use
  Company Number: US-GLAXOSMITHKLINE-A0815142A

PATIENT
  Age: 73 Year
  Sex: Female
  Weight: 87.7 kg

DRUGS (10)
  1. LISINOPRIL [Concomitant]
  2. LIPITOR [Concomitant]
  3. GLIMEPIRIDE [Concomitant]
  4. AVANDIA [Suspect]
     Indication: TYPE 2 DIABETES MELLITUS
     Dosage: 4MG PER DAY
     Route: 048
     Dates: start: 20000101, end: 20070101
  5. METFORMIN [Concomitant]
  6. ZESTORETIC [Concomitant]
  7. AVANDAMET [Suspect]
     Indication: DIABETES MELLITUS
     Dosage: 1TAB TWICE PER DAY
     Route: 048
     Dates: start: 20051001, end: 20060516
  8. AMARYL [Concomitant]
  9. NORVASC [Concomitant]
  10. GLUCOPHAGE [Concomitant]

REACTIONS (9)
  - HEART RATE INCREASED [None]
  - ANXIETY [None]
  - STENT PLACEMENT [None]
  - PALPITATIONS [None]
  - CHEST PAIN [None]
  - PAIN IN EXTREMITY [None]
  - ATRIAL FLUTTER [None]
  - HEART INJURY [None]
  - FEAR [None]
